FAERS Safety Report 14964491 (Version 2)
Quarter: 2018Q2

REPORT INFORMATION
  Report Type: Report from Study
  Country: BE (occurrence: BE)
  Receive Date: 20180601
  Receipt Date: 20180615
  Transmission Date: 20180711
  Serious: Yes (Hospitalization)
  Sender: FDA-Public Use
  Company Number: BE-PFIZER INC-2018212059

PATIENT
  Age: 63 Year
  Sex: Male
  Weight: 83.6 kg

DRUGS (12)
  1. NOBITEN /01339101/ [Concomitant]
     Active Substance: NEBIVOLOL
     Indication: HYPERTENSION
     Dosage: 5 MG, 1X/DAY
     Route: 048
     Dates: start: 2017, end: 20180413
  2. BRONCHOSEDAL [Concomitant]
     Active Substance: DEXTROMETHORPHAN HYDROBROMIDE
     Indication: COUGH
     Dosage: 4.5 MG, 2X/DAY
     Route: 048
     Dates: start: 2017
  3. MINOCYCLINE [Concomitant]
     Active Substance: MINOCYCLINE\MINOCYCLINE HYDROCHLORIDE
     Dosage: 50 MG, 1X/DAY
     Dates: start: 20180515
  4. PARACETAMOL CODEINE [Concomitant]
     Active Substance: ACETAMINOPHEN\CODEINE PHOSPHATE
     Indication: COUGH
     Dosage: 500 MG, AS NEEDED
     Route: 048
     Dates: start: 2017
  5. BURINEX [Concomitant]
     Active Substance: BUMETANIDE
     Indication: OEDEMA
     Dosage: 1 MG, 2X/DAY
     Route: 048
     Dates: start: 20180517
  6. CRIZOTINIB [Suspect]
     Active Substance: CRIZOTINIB
     Indication: COLORECTAL CANCER
     Dosage: 250 MG, 1X/DAY
     Route: 048
     Dates: start: 20180409, end: 20180520
  7. NEXIAM /01479302/ [Concomitant]
     Active Substance: ESOMEPRAZOLE MAGNESIUM
     Indication: PROPHYLAXIS
     Dosage: 20 MG, 1X/DAY
     Route: 048
     Dates: start: 2017
  8. MINOCYCLINE [Concomitant]
     Active Substance: MINOCYCLINE\MINOCYCLINE HYDROCHLORIDE
     Dosage: 100 MG, 1X/DAY
     Dates: start: 20180425, end: 20180514
  9. CHLORELLA VULGARIS [Concomitant]
     Active Substance: CHLORELLA VULGARIS
     Indication: DETOXIFICATION
     Dosage: 500 MG, 1X/DAY
     Route: 048
     Dates: start: 2017
  10. MINOCYCLINE [Concomitant]
     Active Substance: MINOCYCLINE\MINOCYCLINE HYDROCHLORIDE
     Indication: SKIN TOXICITY
     Dosage: 50 MG, 1X/DAY
     Route: 048
     Dates: start: 20180416, end: 20180424
  11. BINIMETINIB [Suspect]
     Active Substance: BINIMETINIB
     Indication: COLORECTAL CANCER
     Dosage: 30 MG, 2X/DAY
     Route: 048
     Dates: start: 20180409, end: 20180520
  12. ROZEX (METRONIDAZOLE) [Concomitant]
     Active Substance: METRONIDAZOLE
     Indication: SKIN TOXICITY
     Dosage: 7.5 MG, 1X/DAY
     Route: 061
     Dates: start: 20180416

REACTIONS (1)
  - Pericarditis [Recovering/Resolving]

NARRATIVE: CASE EVENT DATE: 20180519
